FAERS Safety Report 4876510-X (Version None)
Quarter: 2006Q1

REPORT INFORMATION
  Report Type: 
  Country: None (occurrence: None)
  Receive Date: 20060110
  Receipt Date: 20060104
  Transmission Date: 20060701
  Serious: Yes (Death, Hospitalization, Other)
  Sender: FDA-Public Use
  Company Number: US-GLAXOSMITHKLINE-A0587749A

PATIENT
  Age: 15 Year
  Sex: Female

DRUGS (2)
  1. LAMICTAL [Suspect]
     Route: 048
     Dates: start: 20051001, end: 20051101
  2. ZANTAC [Concomitant]

REACTIONS (6)
  - BRAIN OEDEMA [None]
  - DEATH [None]
  - HEPATIC FAILURE [None]
  - INFECTION [None]
  - LOSS OF CONSCIOUSNESS [None]
  - RASH [None]
